FAERS Safety Report 20018961 (Version 1)
Quarter: 2021Q4

REPORT INFORMATION
  Report Type: Spontaneous
  Country: FR (occurrence: None)
  Receive Date: 20211101
  Receipt Date: 20211101
  Transmission Date: 20220303
  Serious: Yes (Hospitalization)
  Sender: FDA-Public Use
  Company Number: 2021A784141

PATIENT

DRUGS (3)
  1. ESOMEPRAZOLE [Suspect]
     Active Substance: ESOMEPRAZOLE
     Indication: Product used for unknown indication
     Dosage: UNK
     Route: 065
     Dates: end: 202109
  2. OXLUMO [Suspect]
     Active Substance: LUMASIRAN
     Indication: Primary hyperoxaluria
     Dosage: 6 MILLIGRAM/KILOGRAM, MONTHLY
     Route: 058
     Dates: start: 20201218
  3. OXLUMO [Suspect]
     Active Substance: LUMASIRAN
     Indication: Primary hyperoxaluria
     Dosage: 6 MILLIGRAM/KILOGRAM, MONTHLY
     Route: 058
     Dates: start: 20210916

REACTIONS (6)
  - Milk allergy [Unknown]
  - Cell death [Unknown]
  - Neutropenia [Not Recovered/Not Resolved]
  - Enterocolitis [Unknown]
  - Infection [Unknown]
  - Aspartate aminotransferase increased [Not Recovered/Not Resolved]

NARRATIVE: CASE EVENT DATE: 20210215
